FAERS Safety Report 24823104 (Version 2)
Quarter: 2025Q1

REPORT INFORMATION
  Report Type: Spontaneous
  Country: AR (occurrence: AR)
  Receive Date: 20250109
  Receipt Date: 20250331
  Transmission Date: 20250408
  Serious: Yes (Hospitalization, Other)
  Sender: AMGEN
  Company Number: AR-PFIZER INC-202500001734

PATIENT
  Age: 57 Year
  Sex: Female

DRUGS (2)
  1. ENBREL [Suspect]
     Active Substance: ETANERCEPT
     Indication: Colitis ulcerative
     Route: 065
     Dates: start: 20241114
  2. ENBREL [Suspect]
     Active Substance: ETANERCEPT
     Route: 065

REACTIONS (4)
  - Cardiac disorder [Unknown]
  - Bladder perforation [Unknown]
  - Defaecation disorder [Unknown]
  - Off label use [Unknown]
